FAERS Safety Report 6204405-8 (Version None)
Quarter: 2009Q2

REPORT INFORMATION
  Report Type: 
  Country: None (occurrence: None)
  Receive Date: 20090518
  Receipt Date: 20090203
  Transmission Date: 20091009
  Serious: No
  Sender: FDA-Public Use
  Company Number: WAES 0902USA00482

PATIENT
  Age: 57 Year
  Sex: Female

DRUGS (2)
  1. JANUVIA [Suspect]
     Indication: DIABETES MELLITUS
     Dosage: 50 MG/PO : 100 MG/PO
     Route: 048
     Dates: start: 20080718, end: 20090119
  2. JANUVIA [Suspect]
     Indication: DIABETES MELLITUS
     Dosage: 50 MG/PO : 100 MG/PO
     Route: 048
     Dates: start: 20090120, end: 20090203

REACTIONS (3)
  - CHEST DISCOMFORT [None]
  - HEADACHE [None]
  - SWELLING FACE [None]
